FAERS Safety Report 6321472-1 (Version None)
Quarter: 2009Q3

REPORT INFORMATION
  Report Type: 
  Country: None (occurrence: None)
  Receive Date: 20090824
  Receipt Date: 20070920
  Transmission Date: 20100115
  Serious: Yes (Other)
  Sender: FDA-Public Use
  Company Number: US-ASTRAZENECA-2006UW24080

PATIENT
  Age: 11511 Day
  Sex: Male
  Weight: 135.6 kg

DRUGS (8)
  1. SEROQUEL [Suspect]
     Indication: BIPOLAR DISORDER
     Dosage: 25-200 MG
     Route: 048
     Dates: start: 20011219
  2. ZYPREXA [Concomitant]
     Indication: SCHIZOPHRENIA
     Dosage: 5-7.5 MG
     Route: 048
     Dates: start: 19971029
  3. DEPAKOTE [Concomitant]
     Indication: SCHIZOPHRENIA
     Route: 048
     Dates: start: 19971029
  4. ZOCOR [Concomitant]
     Route: 048
     Dates: start: 20021227
  5. ACTOS [Concomitant]
     Dosage: 30-45 MG
     Route: 048
     Dates: start: 20021227
  6. AMBIEN [Concomitant]
     Indication: SLEEP DISORDER
     Route: 048
     Dates: start: 20030522
  7. NEURONTIN [Concomitant]
     Dosage: DISPENSED 300 MG
     Route: 048
     Dates: start: 20001020
  8. ACIPHEX [Concomitant]
     Route: 048
     Dates: start: 20000811

REACTIONS (4)
  - DIABETES MELLITUS [None]
  - DIABETES MELLITUS INADEQUATE CONTROL [None]
  - DIABETIC NEUROPATHY [None]
  - TYPE 2 DIABETES MELLITUS [None]
